FAERS Safety Report 7914222-6 (Version None)
Quarter: 2011Q4

REPORT INFORMATION
  Report Type: 
  Country: None (occurrence: None)
  Receive Date: 20111114
  Receipt Date: 20111114
  Transmission Date: 20120403
  Serious: Yes (Other)
  Sender: FDA-Public Use
  Company Number: None

PATIENT
  Sex: Male
  Weight: 88.2 kg

DRUGS (2)
  1. LAMICTAL [Suspect]
     Indication: EPILEPSY
     Dosage: ONE QAM 1.5 QPM PO
     Route: 048
     Dates: start: 20090801
  2. LAMICTAL [Suspect]
     Indication: AUTISM
     Dosage: ONE QAM 1.5 QPM PO
     Route: 048
     Dates: start: 20090801

REACTIONS (3)
  - PRODUCT SUBSTITUTION ISSUE [None]
  - IRRITABILITY [None]
  - DRUG INEFFECTIVE [None]
